FAERS Safety Report 23854910 (Version 2)
Quarter: 2024Q4

REPORT INFORMATION
  Report Type: Spontaneous
  Country: US (occurrence: US)
  Receive Date: 20240514
  Receipt Date: 20241115
  Transmission Date: 20250115
  Serious: No
  Sender: ANI
  Company Number: US-ANIPHARMA-2024-US-020247

PATIENT
  Age: 70 Year
  Sex: Female

DRUGS (19)
  1. CORTICOTROPIN [Suspect]
     Active Substance: CORTICOTROPIN
     Indication: Pulmonary sarcoidosis
     Dosage: 40 UNITS TWICE WEEKLY / 80 UNITS EVERY 72 HOURS
     Route: 058
  2. ZYRTEC [Concomitant]
     Active Substance: CETIRIZINE HYDROCHLORIDE
  3. ELAVIL [Concomitant]
     Active Substance: AMITRIPTYLINE HYDROCHLORIDE
  4. ESTRADERM [Concomitant]
     Active Substance: ESTRADIOL
  5. PROVERA [Concomitant]
     Active Substance: MEDROXYPROGESTERONE ACETATE
  6. FISH OIL [Concomitant]
     Active Substance: FISH OIL
  7. TERBINAFINE HYDROCHLORIDE [Concomitant]
     Active Substance: TERBINAFINE HYDROCHLORIDE
  8. XANAX [Concomitant]
     Active Substance: ALPRAZOLAM
  9. MINOXIDIL [Concomitant]
     Active Substance: MINOXIDIL
  10. GLIPIZIDE ER [Concomitant]
     Active Substance: GLIPIZIDE
  11. MAXZIDE-25 [Concomitant]
     Active Substance: HYDROCHLOROTHIAZIDE\TRIAMTERENE
  12. PREDNISONE [Concomitant]
     Active Substance: PREDNISONE
  13. FLONASE [Concomitant]
     Active Substance: FLUTICASONE PROPIONATE
  14. NEXIUM [Concomitant]
     Active Substance: ESOMEPRAZOLE MAGNESIUM
  15. TRAMADOL [Concomitant]
     Active Substance: TRAMADOL
  16. MAXIDEX [Concomitant]
     Active Substance: DEXAMETHASONE
  17. LIPITOR [Concomitant]
     Active Substance: ATORVASTATIN CALCIUM
  18. METOPROLOL [Concomitant]
     Active Substance: METOPROLOL
  19. IRON [Concomitant]
     Active Substance: IRON

REACTIONS (5)
  - Foot operation [Unknown]
  - Eye symptom [Not Recovered/Not Resolved]
  - Condition aggravated [Not Recovered/Not Resolved]
  - Musculoskeletal discomfort [Not Recovered/Not Resolved]
  - Product dose omission issue [Unknown]
